FAERS Safety Report 19395240 (Version 1)
Quarter: 2021Q2

REPORT INFORMATION
  Report Type: Spontaneous
  Country: US (occurrence: US)
  Receive Date: 20210609
  Receipt Date: 20210609
  Transmission Date: 20210717
  Serious: No
  Sender: FDA-Public Use
  Company Number: US-TEVA-2021-US-1916127

PATIENT
  Sex: Male

DRUGS (1)
  1. CEPHALEXIN. [Suspect]
     Active Substance: CEPHALEXIN
     Indication: TOOTH INFECTION
     Route: 065

REACTIONS (5)
  - Anxiety [Unknown]
  - Heart rate abnormal [Unknown]
  - Palpitations [Unknown]
  - Dysstasia [Unknown]
  - Postural orthostatic tachycardia syndrome [Unknown]
